FAERS Safety Report 5117286-0 (Version None)
Quarter: 2006Q3

REPORT INFORMATION
  Report Type: 
  Country: None (occurrence: None)
  Receive Date: 20060929
  Receipt Date: 20060706
  Transmission Date: 20061208
  Serious: Yes (Other)
  Sender: FDA-Public Use
  Company Number: US-BAYER-200612848BCC

PATIENT
  Age: 29 Year
  Sex: Female
  Weight: 68 kg

DRUGS (7)
  1. ASPIRIN TAB [Suspect]
     Indication: DRUG USE FOR UNKNOWN INDICATION
     Route: 048
     Dates: start: 19910101
  2. ASPIRIN [Suspect]
     Indication: DRUG USE FOR UNKNOWN INDICATION
     Dosage: TOTAL DAILY DOSE: 325 MG  UNIT DOSE: 325 MG
     Route: 048
     Dates: start: 19910101
  3. COUMADIN [Concomitant]
  4. COREG [Concomitant]
  5. NITROGLYCERIN [Concomitant]
  6. POTASSIUM [Concomitant]
  7. HEART MEDICATION [Concomitant]

REACTIONS (3)
  - CORONARY ARTERY BYPASS [None]
  - HEART VALVE REPLACEMENT [None]
  - MYOCARDIAL INFARCTION [None]
